FAERS Safety Report 14699167 (Version 1)
Quarter: 2018Q1

REPORT INFORMATION
  Report Type: Spontaneous
  Country: DE (occurrence: DE)
  Receive Date: 20180330
  Receipt Date: 20180330
  Transmission Date: 20180509
  Serious: Yes (Disabling, Other)
  Sender: FDA-Public Use
  Company Number: DE-AUROBINDO-AUR-APL-2018-016556

PATIENT
  Age: 40 Year
  Sex: Female
  Weight: 50 kg

DRUGS (3)
  1. PANTOPRAZOL                        /01263201/ [Concomitant]
     Active Substance: PANTOPRAZOLE
     Indication: PRODUCT USED FOR UNKNOWN INDICATION
     Route: 065
  2. AMOXICILLIN. [Concomitant]
     Active Substance: AMOXICILLIN
     Indication: PRODUCT USED FOR UNKNOWN INDICATION
     Dosage: 1 DOSAGE FORM, ONCE A DAY
     Route: 065
     Dates: start: 201506
  3. LEVOFLOXACIN 500MG [Suspect]
     Active Substance: LEVOFLOXACIN
     Indication: HELICOBACTER INFECTION
     Dosage: 2X1 PRO TAG MIT 2X1 AMOXCILLIN UND 1X1 PRANTOPRAZOL (ABGEBROCHEN WEGEN NEBENWIRKUNGEN NACH 5 TAGE...
     Route: 048
     Dates: start: 201506

REACTIONS (20)
  - Autoimmune disorder [Unknown]
  - Rash [Recovered/Resolved]
  - Liver disorder [Recovered/Resolved]
  - Panic attack [Recovered/Resolved]
  - Coordination abnormal [Recovered/Resolved]
  - Alopecia [Recovered/Resolved]
  - Arthralgia [Not Recovered/Not Resolved]
  - Hepatic enzyme increased [Recovered/Resolved]
  - Fatigue [Not Recovered/Not Resolved]
  - Visual impairment [Unknown]
  - Joint stiffness [Unknown]
  - Depression [Not Recovered/Not Resolved]
  - Muscular weakness [Not Recovered/Not Resolved]
  - Gingivitis [Recovered/Resolved]
  - Palpitations [Recovered/Resolved]
  - Bone pain [Unknown]
  - Memory impairment [Not Recovered/Not Resolved]
  - Limb discomfort [Unknown]
  - Impaired work ability [Not Recovered/Not Resolved]
  - Joint swelling [Recovered/Resolved]

NARRATIVE: CASE EVENT DATE: 2015
